FAERS Safety Report 15000306 (Version 1)
Quarter: 2018Q2

REPORT INFORMATION
  Report Type: Spontaneous
  Country: ZA (occurrence: ZA)
  Receive Date: 20180612
  Receipt Date: 20180612
  Transmission Date: 20180711
  Serious: Yes (Other)
  Sender: FDA-Public Use
  Company Number: ZA-D.O.R.C. INTERNATIONAL, B.V.-2049279

PATIENT
  Sex: Female

DRUGS (1)
  1. VISIONBLUE [Suspect]
     Active Substance: TRYPAN BLUE
     Indication: EYE DISORDER
     Route: 031
     Dates: start: 20180115, end: 20180115

REACTIONS (1)
  - Toxic anterior segment syndrome [Recovered/Resolved]

NARRATIVE: CASE EVENT DATE: 20180115
